FAERS Safety Report 5559168-6 (Version None)
Quarter: 2007Q4

REPORT INFORMATION
  Report Type: 
  Country: None (occurrence: None)
  Receive Date: 20071214
  Receipt Date: 20070919
  Transmission Date: 20080405
  Serious: No
  Sender: FDA-Public Use
  Company Number: US-ABBOTT-07P-163-0417895-00

PATIENT
  Sex: Female
  Weight: 63.56 kg

DRUGS (3)
  1. HUMIRA [Suspect]
     Indication: OSTEOARTHRITIS
     Route: 058
     Dates: start: 20070914
  2. LEFLUNOMIDE [Concomitant]
     Indication: OSTEOARTHRITIS
     Route: 048
     Dates: start: 20061201
  3. AZATHIOPRINE [Concomitant]
     Indication: OSTEOARTHRITIS
     Route: 048
     Dates: start: 20070501

REACTIONS (2)
  - PARAESTHESIA ORAL [None]
  - PRURITUS [None]
